FAERS Safety Report 6716181-0 (Version None)
Quarter: 2010Q2

REPORT INFORMATION
  Report Type: 
  Country: None (occurrence: None)
  Receive Date: 20100506
  Receipt Date: 20100506
  Transmission Date: 20101027
  Serious: Yes (Other)
  Sender: FDA-Public Use
  Company Number: None

PATIENT
  Sex: Female
  Weight: 83.0083 kg

DRUGS (1)
  1. SORIATANE [Suspect]
     Indication: ECZEMA
     Dosage: ONCE DAILY PO
     Route: 048

REACTIONS (8)
  - ABDOMINAL PAIN UPPER [None]
  - ALOPECIA [None]
  - DRY EYE [None]
  - FOAMING AT MOUTH [None]
  - NECK PAIN [None]
  - OESOPHAGEAL PAIN [None]
  - THROAT IRRITATION [None]
  - VOMITING [None]
